FAERS Safety Report 9177800 (Version 3)
Quarter: 2012Q4

REPORT INFORMATION
  Report Type: 
  Country: DE (occurrence: JP)
  Receive Date: 20121011
  Receipt Date: 20121217
  Transmission Date: 20130627
  Serious: Yes (Other)
  Sender: FDA-Public Use
  Company Number: JP-BRACCO-006360

PATIENT
  Age: 61 Year
  Sex: Male

DRUGS (5)
  1. OYPALOMIN [Suspect]
     Indication: COMPUTERISED TOMOGRAM
  2. OYPALOMIN [Suspect]
     Indication: PRINZMETAL ANGINA
  3. TOSUFLOXACIN TOSILATE [Suspect]
     Indication: PRODUCT USED FOR UNKNOWN INDICATION
  4. CEFTRIAXONE SODIUM [Suspect]
     Indication: PRODUCT USED FOR UNKNOWN INDICATION
  5. ACETAMINOPHEN [Suspect]
     Indication: PRODUCT USED FOR UNKNOWN INDICATION

REACTIONS (5)
  - Tubulointerstitial nephritis [Recovering/Resolving]
  - Pyrexia [Unknown]
  - Oropharyngeal pain [Unknown]
  - Renal failure [None]
  - Haemodialysis [None]
